FAERS Safety Report 8891281 (Version 1)
Quarter: 2012Q4

REPORT INFORMATION
  Report Type: 
  Country: IT (occurrence: IT)
  Receive Date: 20121107
  Receipt Date: 20121107
  Transmission Date: 20130627
  Serious: Yes (Hospitalization)
  Sender: FDA-Public Use
  Company Number: IT-ASTRAZENECA-2012SE84040

PATIENT
  Age: 16285 Day
  Sex: Female

DRUGS (4)
  1. SEROQUEL [Suspect]
     Indication: DRUG ABUSE
     Route: 048
     Dates: start: 20121025, end: 20121025
  2. HALCION [Suspect]
     Indication: DRUG ABUSE
     Route: 048
     Dates: start: 20121025, end: 20121025
  3. FELISON [Concomitant]
     Route: 048
  4. DEPAKIN [Concomitant]
     Route: 048

REACTIONS (1)
  - Drug abuse [Recovering/Resolving]
